FAERS Safety Report 5545894-1 (Version None)
Quarter: 2007Q4

REPORT INFORMATION
  Report Type: 
  Country: None (occurrence: None)
  Receive Date: 20071211
  Receipt Date: 20070917
  Transmission Date: 20080405
  Serious: No
  Sender: FDA-Public Use
  Company Number: US-ASTRAZENECA-2007UW21940

PATIENT
  Age: 63 Year
  Sex: Female

DRUGS (3)
  1. SYMBICORT [Suspect]
     Indication: ASTHMA
     Dosage: 2 PUFFS AM AND PM
     Route: 055
     Dates: start: 20070907
  2. LOTREL [Concomitant]
  3. SYNTHROID [Concomitant]

REACTIONS (1)
  - SENSITIVITY OF TEETH [None]
